FAERS Safety Report 10082256 (Version 1)
Quarter: 2014Q2

REPORT INFORMATION
  Report Type: Spontaneous
  Country: DE (occurrence: DE)
  Receive Date: 20140416
  Receipt Date: 20140416
  Transmission Date: 20141212
  Serious: Yes (Life-Threatening, Hospitalization)
  Sender: FDA-Public Use
  Company Number: DE-ELI_LILLY_AND_COMPANY-DE201404004244

PATIENT
  Age: 29 Year
  Sex: Female

DRUGS (2)
  1. EFIENT [Suspect]
     Indication: ACUTE MYOCARDIAL INFARCTION
     Dosage: UNK
     Route: 048
  2. EFIENT [Suspect]
     Indication: CARDIOGENIC SHOCK

REACTIONS (3)
  - Sepsis [Unknown]
  - Pneumonia [Unknown]
  - Thrombocytosis [Unknown]
